FAERS Safety Report 4836418-2 (Version None)
Quarter: 2005Q4

REPORT INFORMATION
  Report Type: 
  Country: None (occurrence: None)
  Receive Date: 20051123
  Receipt Date: 20051116
  Transmission Date: 20060501
  Serious: Yes (Other)
  Sender: FDA-Public Use
  Company Number: BM-JNJFOC-20051105219

PATIENT
  Sex: Female
  Weight: 92.99 kg

DRUGS (10)
  1. EXTRA STRENGTH TYLENOL [Suspect]
     Indication: HEADACHE
     Route: 048
  2. EXTRA STRENGTH TYLENOL [Suspect]
     Indication: PAIN
     Dosage: 1000MG Q4-6H, PRN, ORAL
     Route: 048
  3. PREDNISONE [Concomitant]
  4. SYMBICORT [Concomitant]
  5. SYMBICORT [Concomitant]
  6. SINGULAIR [Concomitant]
  7. RHINOCORT [Concomitant]
  8. VENTOLIN [Concomitant]
     Dosage: PRN
  9. NEXIUM [Concomitant]
  10. IRON PILLS [Concomitant]

REACTIONS (4)
  - ORAL DISCOMFORT [None]
  - PHARMACEUTICAL PRODUCT COMPLAINT [None]
  - RESPIRATORY DISORDER [None]
  - THROAT IRRITATION [None]
